FAERS Safety Report 5727435-9 (Version None)
Quarter: 2008Q2

REPORT INFORMATION
  Report Type: 
  Country: None (occurrence: None)
  Receive Date: 20080505
  Receipt Date: 20080424
  Transmission Date: 20081010
  Serious: Yes (Death)
  Sender: FDA-Public Use
  Company Number: FR-AVENTIS-200811549FR

PATIENT
  Age: 42 Year
  Sex: Male

DRUGS (3)
  1. TAXOTERE [Suspect]
     Route: 042
     Dates: start: 20071210, end: 20071210
  2. CISPLATIN [Suspect]
     Route: 042
     Dates: start: 20071210, end: 20071210
  3. FLUOROURACIL [Suspect]
     Route: 042
     Dates: start: 20071210, end: 20071210

REACTIONS (2)
  - BONE MARROW FAILURE [None]
  - PYREXIA [None]
